FAERS Safety Report 12729102 (Version 1)
Quarter: 2016Q3

REPORT INFORMATION
  Report Type: Spontaneous
  Country: US (occurrence: US)
  Receive Date: 20160909
  Receipt Date: 20160909
  Transmission Date: 20161109
  Serious: Yes (Other)
  Sender: FDA-Public Use
  Company Number: PHEH2016US022453

PATIENT
  Sex: Female

DRUGS (1)
  1. PROMACTA [Suspect]
     Active Substance: ELTROMBOPAG OLAMINE
     Indication: MALAISE
     Dosage: 150 MG, QD
     Route: 048
     Dates: start: 20160528

REACTIONS (2)
  - Decreased appetite [Unknown]
  - Weight decreased [Unknown]
